FAERS Safety Report 10310730 (Version 1)
Quarter: 2014Q3

REPORT INFORMATION
  Report Type: Spontaneous
  Country: US (occurrence: None)
  Receive Date: 20140716
  Receipt Date: 20140716
  Transmission Date: 20150326
  Serious: Yes (Life-Threatening)
  Sender: FDA-Public Use
  Company Number: None

PATIENT
  Age: 65 Year
  Sex: Male
  Weight: 84.82 kg

DRUGS (1)
  1. TERBINAFINE [Suspect]
     Active Substance: TERBINAFINE

REACTIONS (25)
  - Flatulence [None]
  - Vomiting [None]
  - Chromaturia [None]
  - Hepatic enzyme increased [None]
  - Toxicity to various agents [None]
  - Skin atrophy [None]
  - Abnormal faeces [None]
  - Pruritus [None]
  - Faeces hard [None]
  - Constipation [None]
  - Rash [None]
  - Weight decreased [None]
  - Skin discolouration [None]
  - Nausea [None]
  - Fatigue [None]
  - Jaundice [None]
  - Insomnia [None]
  - Somnolence [None]
  - No therapeutic response [None]
  - Decreased appetite [None]
  - Faeces pale [None]
  - Rash pustular [None]
  - Vision blurred [None]
  - Anxiety [None]
  - Lethargy [None]

NARRATIVE: CASE EVENT DATE: 20140217
